FAERS Safety Report 13433220 (Version 7)
Quarter: 2018Q4

REPORT INFORMATION
  Report Type: Spontaneous
  Country: US (occurrence: US)
  Receive Date: 20170412
  Receipt Date: 20181012
  Transmission Date: 20190204
  Serious: Yes (Hospitalization)
  Sender: FDA-Public Use
  Company Number: US-ACTELION-A-NJ2017-152241

PATIENT
  Age: 66 Year
  Sex: Male
  Weight: 72.11 kg

DRUGS (17)
  1. PANTOPRAZOLE [Concomitant]
     Active Substance: PANTOPRAZOLE
     Dosage: 40 MG, BREAKFAST AND DINNER
  2. SILDENAFIL. [Concomitant]
     Active Substance: SILDENAFIL
     Dosage: 20 MG, 6AM/3PM AND 10 PM
  3. SYNTHROID [Concomitant]
     Active Substance: LEVOTHYROXINE SODIUM
     Dosage: 75 MCG, UNK
  4. MAGNESIUM [Concomitant]
     Active Substance: MAGNESIUM
     Dosage: 400 MG BREAKFAST
  5. ALLOPURINOL. [Concomitant]
     Active Substance: ALLOPURINOL
     Dosage: 100 MG, QD AT BREAKFRAST
  6. POTASSIUM [Concomitant]
     Active Substance: POTASSIUM
     Dosage: 20 MG, BREAKFAST
  7. ATORVASTATIN [Concomitant]
     Active Substance: ATORVASTATIN
     Dosage: 40 MG, UNK
  8. ALLEGRA [Concomitant]
     Active Substance: FEXOFENADINE HYDROCHLORIDE
     Dosage: UNK
  9. OPSUMIT [Suspect]
     Active Substance: MACITENTAN
     Indication: PULMONARY HYPERTENSION
     Dosage: 10 MG, QD
     Route: 048
     Dates: start: 201610
  10. FERROUS SULFATE. [Concomitant]
     Active Substance: FERROUS SULFATE
     Dosage: 325 MG, QD BREAKFAST
  11. LISINOPRIL. [Concomitant]
     Active Substance: LISINOPRIL
     Dosage: 10 MG,  (BREAKFAST AND DINNER)
  12. POTASSIUM [Concomitant]
     Active Substance: POTASSIUM
     Dosage: 40 MG, DINNER
  13. WARFARIN [Concomitant]
     Active Substance: WARFARIN
     Dosage: 1MG M, F=4 TAB, W,TH, S, SUN 3 TABS
  14. MIDODRINE [Concomitant]
     Active Substance: MIDODRINE
     Dosage: UNK
     Dates: end: 20171029
  15. DIGOXIN. [Concomitant]
     Active Substance: DIGOXIN
     Dosage: 125 MG, QD AT BREAKFAST
  16. ASPIRIN. [Concomitant]
     Active Substance: ASPIRIN
     Dosage: 325 MG, QD AT BREAKFAST
  17. MAGNESIUM [Concomitant]
     Active Substance: MAGNESIUM
     Dosage: 40 MG DINNER

REACTIONS (11)
  - Fall [Recovered/Resolved]
  - Transplant [Unknown]
  - Dizziness [Not Recovered/Not Resolved]
  - Hyponatraemia [Unknown]
  - Headache [Not Recovered/Not Resolved]
  - Anxiety [Unknown]
  - Bacteraemia [Unknown]
  - Nervousness [Unknown]
  - Back pain [Recovered/Resolved]
  - Syncope [Recovered/Resolved]
  - Infection [Not Recovered/Not Resolved]

NARRATIVE: CASE EVENT DATE: 2017
